FAERS Safety Report 5455345-3 (Version None)
Quarter: 2007Q3

REPORT INFORMATION
  Report Type: 
  Country: None (occurrence: None)
  Receive Date: 20070913
  Receipt Date: 20070913
  Transmission Date: 20080115
  Serious: Yes (Other)
  Sender: FDA-Public Use
  Company Number: None

PATIENT
  Age: 49 Year
  Sex: Female
  Weight: 63.5036 kg

DRUGS (1)
  1. BONIVA [Suspect]
     Indication: BONE DENSITY DECREASED
     Dosage: 1 TABLET  1 TIME MONTHLY  PO
     Route: 048
     Dates: start: 20060901, end: 20070811

REACTIONS (6)
  - ASTHENIA [None]
  - BONE PAIN [None]
  - HYPERSOMNIA [None]
  - MYALGIA [None]
  - THROAT IRRITATION [None]
  - VOMITING [None]
